FAERS Safety Report 15062035 (Version 1)
Quarter: 2018Q2

REPORT INFORMATION
  Report Type: Spontaneous
  Country: US (occurrence: US)
  Receive Date: 20180625
  Receipt Date: 20180625
  Transmission Date: 20180711
  Serious: Yes (Hospitalization)
  Sender: FDA-Public Use
  Company Number: US-ACTELION-A-US2018-174114

PATIENT
  Age: 82 Year
  Sex: Female

DRUGS (7)
  1. BUMEX [Concomitant]
     Active Substance: BUMETANIDE
  2. LYRICA [Concomitant]
     Active Substance: PREGABALIN
  3. POTASSIUM [Concomitant]
     Active Substance: POTASSIUM
  4. TRACLEER [Suspect]
     Active Substance: BOSENTAN
     Indication: PULMONARY ARTERIAL HYPERTENSION
     Dosage: 125 MG, BID
     Route: 048
     Dates: start: 20120428
  5. LISINOPRIL. [Concomitant]
     Active Substance: LISINOPRIL
  6. SILDENAFIL. [Concomitant]
     Active Substance: SILDENAFIL
  7. ELIQUIS [Concomitant]
     Active Substance: APIXABAN

REACTIONS (4)
  - Fluid retention [Recovered/Resolved]
  - Dehydration [Recovered/Resolved]
  - Confusional state [Recovering/Resolving]
  - Acute kidney injury [Recovering/Resolving]

NARRATIVE: CASE EVENT DATE: 20180610
